FAERS Safety Report 6607182-1 (Version None)
Quarter: 2010Q1

REPORT INFORMATION
  Report Type: 
  Country: None (occurrence: None)
  Receive Date: 20100227
  Receipt Date: 20100215
  Transmission Date: 20100710
  Serious: Yes (Death)
  Sender: FDA-Public Use
  Company Number: US-JNJFOC-20100208246

PATIENT
  Sex: Male
  Weight: 71.67 kg

DRUGS (2)
  1. DURAGESIC-100 [Suspect]
     Indication: DRUG USE FOR UNKNOWN INDICATION
     Dosage: APPLIED 6 PATCHES
     Route: 062
  2. LIDOCAINE [Concomitant]
     Route: 065

REACTIONS (3)
  - DRUG ADMINISTERED AT INAPPROPRIATE SITE [None]
  - NARCOTIC INTOXICATION [None]
  - WRONG TECHNIQUE IN DRUG USAGE PROCESS [None]
